FAERS Safety Report 21844272 (Version 2)
Quarter: 2023Q1

REPORT INFORMATION
  Report Type: Report from Study
  Country: US (occurrence: US)
  Receive Date: 20230110
  Receipt Date: 20230125
  Transmission Date: 20230418
  Serious: Yes (Hospitalization, Other)
  Sender: FDA-Public Use
  Company Number: US-TAKEDA-2023TUS002429

PATIENT
  Age: 6 Year
  Sex: Male

DRUGS (10)
  1. TEDUGLUTIDE [Suspect]
     Active Substance: TEDUGLUTIDE
     Indication: Short-bowel syndrome
     Dosage: 0.72 MILLIGRAM, QD
     Route: 042
     Dates: start: 20200131
  2. TEDUGLUTIDE [Suspect]
     Active Substance: TEDUGLUTIDE
     Indication: Short-bowel syndrome
     Dosage: 0.72 MILLIGRAM, QD
     Route: 042
     Dates: start: 20200131
  3. TEDUGLUTIDE [Suspect]
     Active Substance: TEDUGLUTIDE
     Indication: Short-bowel syndrome
     Dosage: 0.72 MILLIGRAM, QD
     Route: 042
     Dates: start: 20200131
  4. TEDUGLUTIDE [Suspect]
     Active Substance: TEDUGLUTIDE
     Indication: Short-bowel syndrome
     Dosage: 0.72 MILLIGRAM, QD
     Route: 042
     Dates: start: 20200131
  5. FAMOTIDINE [Concomitant]
     Active Substance: FAMOTIDINE
     Indication: Gastrointestinal motility disorder
     Dosage: 20 MILLIGRAM, QD
     Route: 050
     Dates: start: 20220826
  6. METRONIDAZOLE [Concomitant]
     Active Substance: METRONIDAZOLE
     Indication: Overgrowth bacterial
     Dosage: 175 MILLIGRAM, TID
     Route: 048
     Dates: start: 20211119, end: 20220826
  7. ALBUTEROL [Concomitant]
     Active Substance: ALBUTEROL
     Indication: Wheezing
     Dosage: 2.5 MILLIGRAM
     Route: 050
     Dates: start: 20200827
  8. ALBUTEROL [Concomitant]
     Active Substance: ALBUTEROL
     Dosage: 2 DOSAGE FORM
     Route: 050
     Dates: start: 20201211
  9. SULFASALAZINE [Concomitant]
     Active Substance: SULFASALAZINE
     Indication: Anastomotic ulcer
     Dosage: 10 MILLILITER, BID
     Route: 050
     Dates: start: 20210202, end: 20220826
  10. SULFASALAZINE [Concomitant]
     Active Substance: SULFASALAZINE
     Dosage: 10 MILLILITER, BID
     Route: 050
     Dates: start: 20220825

REACTIONS (3)
  - Acute respiratory distress syndrome [Recovered/Resolved]
  - Asthma [Recovered/Resolved]
  - Rhinovirus infection [Recovered/Resolved]

NARRATIVE: CASE EVENT DATE: 20221207
